FAERS Safety Report 21613394 (Version 1)
Quarter: 2022Q4

REPORT INFORMATION
  Report Type: Report from Study
  Country: US (occurrence: US)
  Receive Date: 20221118
  Receipt Date: 20221118
  Transmission Date: 20230113
  Serious: No
  Sender: FDA-Public Use
  Company Number: US-ABBVIE-4170769

PATIENT
  Sex: Male

DRUGS (4)
  1. RINVOQ [Suspect]
     Active Substance: UPADACITINIB
     Indication: Product used for unknown indication
     Dosage: 30 MILLIGRAMS
     Route: 048
     Dates: start: 202208, end: 2022
  2. HYDROCHLOROTHIAZIDE\LOSARTAN [Concomitant]
     Active Substance: HYDROCHLOROTHIAZIDE\LOSARTAN
     Indication: Product used for unknown indication
  3. BUPROPION HCL SR 150 MG TAB SR 12H [Concomitant]
     Indication: Product used for unknown indication
  4. JANSSEN COVID-19 VACCINE (EUA) [Concomitant]
     Indication: COVID-19 immunisation
     Route: 030

REACTIONS (1)
  - Feeling abnormal [Not Recovered/Not Resolved]
